FAERS Safety Report 4356905-3 (Version None)
Quarter: 2004Q2

REPORT INFORMATION
  Report Type: 
  Country: None (occurrence: None)
  Receive Date: 20040507
  Receipt Date: 20040421
  Transmission Date: 20050107
  Serious: No
  Sender: FDA-Public Use
  Company Number: JP_040402928

PATIENT
  Age: 61 Year
  Sex: Female
  Weight: 44 kg

DRUGS (1)
  1. PERMAX [Suspect]
     Indication: PARKINSON'S DISEASE
     Dosage: 750  UG DAY
     Dates: end: 20020101

REACTIONS (3)
  - ASTHENIA [None]
  - CONDITION AGGRAVATED [None]
  - PARKINSON'S DISEASE [None]
